FAERS Safety Report 15738648 (Version 1)
Quarter: 2018Q4

REPORT INFORMATION
  Report Type: Spontaneous
  Country: US (occurrence: US)
  Receive Date: 20181219
  Receipt Date: 20181219
  Transmission Date: 20190205
  Serious: No
  Sender: FDA-Public Use
  Company Number: US-BIOGEN-2018BI00670307

PATIENT
  Sex: Female

DRUGS (1)
  1. TECFIDERA [Suspect]
     Active Substance: DIMETHYL FUMARATE
     Indication: MULTIPLE SCLEROSIS
     Route: 048
     Dates: start: 20140807

REACTIONS (6)
  - Eye disorder [Unknown]
  - Pain in extremity [Recovered/Resolved]
  - Fall [Recovered/Resolved]
  - Neck injury [Unknown]
  - Pruritus [Not Recovered/Not Resolved]
  - Back injury [Unknown]
